FAERS Safety Report 9022312 (Version 1)
Quarter: 2013Q1

REPORT INFORMATION
  Report Type: Spontaneous
  Country: US (occurrence: US)
  Receive Date: 20130118
  Receipt Date: 20130118
  Transmission Date: 20140127
  Serious: No
  Sender: FDA-Public Use
  Company Number: US-JNJFOC-20130105502

PATIENT
  Sex: Female
  Weight: 90.72 kg

DRUGS (1)
  1. SANDOZ FENTANYL TRANSDERMAL SYSTEM [Suspect]
     Indication: PRODUCT USED FOR UNKNOWN INDICATION
     Route: 062
     Dates: start: 2009

REACTIONS (5)
  - Product quality issue [Unknown]
  - Product physical issue [Unknown]
  - Product quality issue [Unknown]
  - Application site irritation [Unknown]
  - Poor quality drug administered [Unknown]
